FAERS Safety Report 7240758-X (Version None)
Quarter: 2011Q1

REPORT INFORMATION
  Report Type: 
  Country: None (occurrence: None)
  Receive Date: 20110124
  Receipt Date: 20101231
  Transmission Date: 20110831
  Serious: Yes (Death)
  Sender: FDA-Public Use
  Company Number: GB-TEVA-260633ISR

PATIENT
  Age: 33 Year
  Sex: Female
  Weight: 78 kg

DRUGS (3)
  1. CLOZAPINE [Suspect]
     Indication: SCHIZOPHRENIA
     Route: 048
     Dates: start: 20050101, end: 20090507
  2. VENLAFAXINE [Suspect]
     Indication: DEPRESSION
     Route: 048
     Dates: start: 20050101, end: 20090507
  3. VALPROATE SODIUM [Suspect]
     Indication: CONVULSION
     Route: 048
     Dates: start: 20090101, end: 20090507

REACTIONS (4)
  - FALL [None]
  - CYANOSIS [None]
  - EPILEPSY [None]
  - VOMITING [None]
